FAERS Safety Report 18442113 (Version 2)
Quarter: 2021Q1

REPORT INFORMATION
  Report Type: Spontaneous
  Country: US (occurrence: US)
  Receive Date: 20201029
  Receipt Date: 20210131
  Transmission Date: 20210419
  Serious: Yes (Death, Other)
  Sender: FDA-Public Use
  Company Number: US-PURDUE-USA-2020-0172816

PATIENT
  Age: 72 Year
  Sex: Female

DRUGS (2)
  1. HYDROCODONE BITARTRATE (SIMILAR TO NDA 206627) [Suspect]
     Active Substance: HYDROCODONE BITARTRATE
     Indication: PRODUCT USED FOR UNKNOWN INDICATION
     Dosage: UNK
     Route: 065
  2. GABAPENTIN. [Suspect]
     Active Substance: GABAPENTIN
     Indication: PRODUCT USED FOR UNKNOWN INDICATION
     Dosage: UNK
     Route: 065

REACTIONS (13)
  - Acute kidney injury [Unknown]
  - Withdrawal syndrome [Unknown]
  - Hepatic cirrhosis [Unknown]
  - Emotional distress [Unknown]
  - Drug dependence [Unknown]
  - Acute respiratory distress syndrome [Fatal]
  - Renal disorder [Unknown]
  - Septic shock [Fatal]
  - Chronic obstructive pulmonary disease [Unknown]
  - Steatohepatitis [Unknown]
  - Liver disorder [None]
  - Pain [Unknown]
  - Chronic kidney disease [Unknown]

NARRATIVE: CASE EVENT DATE: 20181223
